FAERS Safety Report 9830155 (Version 2)
Quarter: 2014Q1

REPORT INFORMATION
  Report Type: Spontaneous
  Country: CY (occurrence: CY)
  Receive Date: 20140120
  Receipt Date: 20140203
  Transmission Date: 20141002
  Serious: Yes (Other)
  Sender: FDA-Public Use
  Company Number: CY-PFIZER INC-2014013594

PATIENT
  Age: 78 Year
  Sex: Male
  Weight: 72 kg

DRUGS (2)
  1. SUNITINIB MALATE [Suspect]
     Indication: RENAL CANCER METASTATIC
     Dosage: 37.5 MG, 4 WEEKS ON AND 2 WEEKS OFF
     Route: 048
     Dates: start: 20111115, end: 20130705
  2. THYROXINE [Concomitant]
     Indication: HYPOTHYROIDISM
     Dosage: 100 UG/KG, UNK
     Dates: start: 20121210

REACTIONS (2)
  - Loss of consciousness [Recovered/Resolved]
  - Electrocardiogram QT prolonged [Recovered/Resolved]
